FAERS Safety Report 8217963-9 (Version None)
Quarter: 2012Q1

REPORT INFORMATION
  Report Type: 
  Country: None (occurrence: None)
  Receive Date: 20120305
  Receipt Date: 20111116
  Transmission Date: 20120608
  Serious: No
  Sender: FDA-Public Use
  Company Number: 1000025578

PATIENT
  Age: 85 Year
  Sex: Male

DRUGS (4)
  1. ALBUTEROL [Concomitant]
  2. SPIRIVA [Concomitant]
  3. DALIRESP [Suspect]
     Indication: CHRONIC OBSTRUCTIVE PULMONARY DISEASE
     Dosage: 500 MCG (500 MCG, 1 IN 1 D), ORAL
     Route: 048
     Dates: start: 20111114
  4. ADVAIR HFA [Concomitant]

REACTIONS (3)
  - HYPOAESTHESIA ORAL [None]
  - PARAESTHESIA ORAL [None]
  - ABDOMINAL PAIN [None]
